FAERS Safety Report 17228402 (Version 1)
Quarter: 2019Q4

REPORT INFORMATION
  Report Type: Spontaneous
  Country: US (occurrence: US)
  Receive Date: 20191210
  Receipt Date: 20191210
  Transmission Date: 20200122
  Serious: Yes (Hospitalization)
  Sender: FDA-Public Use
  Company Number: None

PATIENT
  Age: 68 Year
  Sex: Male

DRUGS (1)
  1. OCTREOTIDE 100 MCG/ML [Suspect]
     Active Substance: OCTREOTIDE
     Indication: DIARRHOEA
     Dosage: ?          OTHER STRENGTH:100 UG/ML;?
     Route: 058
     Dates: start: 20181115, end: 20191210

REACTIONS (1)
  - Therapy cessation [None]

NARRATIVE: CASE EVENT DATE: 20191110
